FAERS Safety Report 11365222 (Version 2)
Quarter: 2015Q3

REPORT INFORMATION
  Report Type: Spontaneous
  Country: US (occurrence: US)
  Receive Date: 20150811
  Receipt Date: 20150917
  Transmission Date: 20151125
  Serious: Yes (Death, Hospitalization, Other)
  Sender: FDA-Public Use
  Company Number: US-MERCK-1508USA003907

PATIENT
  Sex: Male

DRUGS (2)
  1. JANUVIA [Suspect]
     Active Substance: SITAGLIPTIN PHOSPHATE
     Indication: TYPE 2 DIABETES MELLITUS
     Dosage: 100 MG, QD
     Route: 048
     Dates: start: 20120827, end: 20140521
  2. JANUVIA [Suspect]
     Active Substance: SITAGLIPTIN PHOSPHATE
     Dosage: 50 MG, QD
     Route: 048
     Dates: start: 20121102, end: 20140421

REACTIONS (53)
  - Pancreatitis chronic [Not Recovered/Not Resolved]
  - Vision blurred [Unknown]
  - Diverticulum [Unknown]
  - Hepatic calcification [Unknown]
  - Anaemia of chronic disease [Unknown]
  - Left ventricular hypertrophy [Unknown]
  - Atelectasis [Unknown]
  - Acute respiratory failure [Recovering/Resolving]
  - Sepsis [Recovered/Resolved]
  - Acute kidney injury [Recovering/Resolving]
  - Nephrolithiasis [Unknown]
  - Hepatic steatosis [Unknown]
  - Mucosal inflammation [Unknown]
  - Leukocytosis [Unknown]
  - Death [Fatal]
  - Abdominal pain [Recovering/Resolving]
  - Lipoma [Unknown]
  - Coagulopathy [Unknown]
  - Metastases to lung [Unknown]
  - Malnutrition [Unknown]
  - Chest pain [Unknown]
  - Gallbladder disorder [Unknown]
  - Adrenal disorder [Unknown]
  - Pleural effusion [Recovered/Resolved]
  - Hypotension [Recovered/Resolved]
  - Neutropenia [Unknown]
  - Oral candidiasis [Unknown]
  - Dehydration [Recovering/Resolving]
  - Angina pectoris [Unknown]
  - Aortic calcification [Unknown]
  - Arteriosclerosis coronary artery [Unknown]
  - Cardiac valve sclerosis [Unknown]
  - Asthenia [Unknown]
  - Alcoholism [Unknown]
  - Urinary retention [Recovered/Resolved]
  - Hyperkalaemia [Unknown]
  - Dysphagia [Unknown]
  - Pancreatic carcinoma [Unknown]
  - Hyperkalaemia [Recovering/Resolving]
  - Pancytopenia [Unknown]
  - Metabolic acidosis [Recovered/Resolved]
  - Peripheral vascular disorder [Unknown]
  - Hepatic cyst [Unknown]
  - Myocardial ischaemia [Unknown]
  - Angiopathy [Unknown]
  - Odynophagia [Recovering/Resolving]
  - Diabetes mellitus inadequate control [Unknown]
  - Pneumonia [Unknown]
  - Acute kidney injury [Recovering/Resolving]
  - Chronic kidney disease [Not Recovered/Not Resolved]
  - Dyslipidaemia [Unknown]
  - Ventricular tachycardia [Unknown]
  - Abdominal pain [Not Recovered/Not Resolved]

NARRATIVE: CASE EVENT DATE: 2012
